FAERS Safety Report 4971783-7 (Version None)
Quarter: 2006Q2

REPORT INFORMATION
  Report Type: 
  Country: None (occurrence: None)
  Receive Date: 20060413
  Receipt Date: 20060403
  Transmission Date: 20061013
  Serious: Yes (Hospitalization)
  Sender: FDA-Public Use
  Company Number: 2006GB00555

PATIENT
  Age: 45 Year
  Sex: Female

DRUGS (3)
  1. SEROQUEL [Suspect]
     Route: 048
  2. RISPERDAL [Suspect]
     Route: 048
  3. PROCYCLIDINE HYDROCHLORIDE 2MG TAB [Concomitant]
     Route: 065

REACTIONS (4)
  - FACIAL PALSY [None]
  - GALACTORRHOEA [None]
  - PARAESTHESIA [None]
  - TONGUE SPASM [None]
